FAERS Safety Report 21054969 (Version 1)
Quarter: 2022Q3

REPORT INFORMATION
  Report Type: Report from Study
  Country: US (occurrence: US)
  Receive Date: 20220707
  Receipt Date: 20220707
  Transmission Date: 20221026
  Serious: Yes (Other)
  Sender: FDA-Public Use
  Company Number: US-SEATTLE GENETICS-2022SGN04718

PATIENT
  Age: 74 Year
  Sex: Female

DRUGS (4)
  1. TUCATINIB [Suspect]
     Active Substance: TUCATINIB
     Indication: Breast cancer female
     Dosage: UNK
     Route: 065
  2. TUCATINIB [Suspect]
     Active Substance: TUCATINIB
     Dosage: UNK
     Route: 065
  3. TUCATINIB [Suspect]
     Active Substance: TUCATINIB
     Dosage: UNK
     Route: 065
  4. CAPECITABINE [Suspect]
     Active Substance: CAPECITABINE
     Indication: Breast cancer female
     Route: 065

REACTIONS (6)
  - Renal impairment [Unknown]
  - Illness [Unknown]
  - Product dose omission in error [Unknown]
  - Fatigue [Unknown]
  - Gastrointestinal disorder [Unknown]
  - Malaise [Unknown]

NARRATIVE: CASE EVENT DATE: 20220616
